FAERS Safety Report 23616161 (Version 1)
Quarter: 2024Q1

REPORT INFORMATION
  Report Type: Spontaneous
  Country: AT (occurrence: AT)
  Receive Date: 20240311
  Receipt Date: 20240311
  Transmission Date: 20240409
  Serious: Yes (Hospitalization)
  Sender: FDA-Public Use
  Company Number: AT-ROCHE-2777644

PATIENT
  Age: 42 Year
  Sex: Female
  Weight: 60 kg

DRUGS (49)
  1. FEMARA [Suspect]
     Active Substance: LETROZOLE
     Indication: HER2 positive breast cancer
     Dosage: 2.500MG QD
     Route: 048
     Dates: start: 20180426, end: 20200225
  2. HERCEPTIN [Suspect]
     Active Substance: TRASTUZUMAB
     Indication: HER2 positive breast cancer
     Dosage: 600.000MG TIW
     Route: 058
     Dates: start: 20190509, end: 20191227
  3. HERCEPTIN [Suspect]
     Active Substance: TRASTUZUMAB
     Dosage: 600.000MG TIW
     Route: 058
     Dates: start: 20180503, end: 20190502
  4. KADCYLA [Suspect]
     Active Substance: ADO-TRASTUZUMAB EMTANSINE
     Indication: HER2 positive breast cancer
     Dosage: 3.600MG/KG TIW
     Route: 042
     Dates: start: 20161114, end: 20170424
  5. KADCYLA [Suspect]
     Active Substance: ADO-TRASTUZUMAB EMTANSINE
     Dosage: 3.600MG/KG
     Route: 042
     Dates: start: 20170821, end: 20171120
  6. LETROZOLE [Suspect]
     Active Substance: LETROZOLE
     Indication: Breast cancer
     Dosage: 2.5 MG, QD
     Route: 048
     Dates: start: 20180426
  7. LEUPROLIDE ACETATE [Suspect]
     Active Substance: ISOPROPYL ALCOHOL\LEUPROLIDE ACETATE
     Indication: Breast cancer
     Dosage: 11.25 MG, Q3MO (11.25 MILLIGRAM, Q3MONTHS)
     Route: 058
     Dates: start: 201804
  8. PERTUZUMAB [Suspect]
     Active Substance: PERTUZUMAB
     Indication: Breast cancer
     Dosage: 420 MG, Q3W
     Route: 042
     Dates: start: 201811
  9. PERTUZUMAB [Suspect]
     Active Substance: PERTUZUMAB
     Dosage: 840 MG, TIW
     Route: 042
     Dates: start: 20181122, end: 20181122
  10. PERJETA [Suspect]
     Active Substance: PERTUZUMAB
     Dosage: 420.000MG TIW
     Route: 058
     Dates: start: 20181213, end: 20190502
  11. PERJETA [Suspect]
     Active Substance: PERTUZUMAB
     Dosage: 420.000MG TIW
     Route: 058
     Dates: start: 201811
  12. PERJETA [Suspect]
     Active Substance: PERTUZUMAB
     Indication: HER2 positive breast cancer
     Dosage: 840.000MG TIW
     Route: 058
     Dates: start: 20181122, end: 20181122
  13. ADO-TRASTUZUMAB EMTANSINE [Suspect]
     Active Substance: ADO-TRASTUZUMAB EMTANSINE
     Indication: Breast cancer
     Dosage: 3.6 MG/KG, Q4W(3.6 MILLIGRAM/KILOGRAM, Q4WEEKS)
     Route: 042
     Dates: start: 20161114, end: 20170522
  14. TRASTUZUMAB [Suspect]
     Active Substance: TRASTUZUMAB
     Indication: Breast cancer
     Dosage: 600 MG, Q3W
     Route: 042
     Dates: start: 20180503
  15. TRENANTONE [Suspect]
     Active Substance: LEUPROLIDE ACETATE
     Indication: HER2 positive breast cancer
     Dosage: 11.250MG
     Route: 058
     Dates: start: 201804, end: 20200225
  16. AMOXICILLIN [Concomitant]
     Active Substance: AMOXICILLIN
     Indication: Product used for unknown indication
     Dosage: UNK
     Route: 065
     Dates: start: 201904, end: 201904
  17. DENOSUMAB [Concomitant]
     Active Substance: DENOSUMAB
     Indication: Breast cancer
     Dosage: 120 MG, QMO(120 MILLIGRAM, MONTHLY)
     Route: 058
     Dates: start: 201611, end: 20181129
  18. EMEND [Concomitant]
     Active Substance: APREPITANT
     Indication: Product used for unknown indication
     Dosage: ONGOING = NOT CHECKED
     Route: 065
     Dates: start: 20161115, end: 20200417
  19. DEXAMETHASONE [Concomitant]
     Active Substance: DEXAMETHASONE
     Indication: Nausea
     Dosage: UNK
     Route: 065
     Dates: start: 20170330, end: 20200417
  20. DEXAMETHASONE [Concomitant]
     Active Substance: DEXAMETHASONE
     Indication: Vomiting
     Dosage: UNK
     Route: 065
     Dates: start: 20200229, end: 20200302
  21. DEXAMETHASONE [Concomitant]
     Active Substance: DEXAMETHASONE
     Dosage: UNK
     Route: 065
     Dates: start: 20200303, end: 20200309
  22. FRAGMIN [Concomitant]
     Active Substance: DALTEPARIN SODIUM
     Indication: Product used for unknown indication
     Dosage: ONGOING = NOT CHECKED
     Route: 065
     Dates: start: 20200228, end: 20200311
  23. LAFENE [Concomitant]
     Indication: General physical health deterioration
     Dosage: UNK
     Route: 065
     Dates: start: 20190421, end: 20200224
  24. LAFENE [Concomitant]
     Indication: Spinal pain
     Dosage: UNK
     Route: 065
     Dates: start: 20200225, end: 20200417
  25. LYRICA [Concomitant]
     Active Substance: PREGABALIN
     Indication: General physical health deterioration
     Dosage: ONGOING = NOT CHECKED
     Route: 065
     Dates: start: 20200225, end: 20200417
  26. ACETAMINOPHEN [Concomitant]
     Active Substance: ACETAMINOPHEN
     Indication: Metastases to central nervous system
     Dosage: UNK
     Route: 065
     Dates: start: 20200228, end: 20200228
  27. ACETAMINOPHEN [Concomitant]
     Active Substance: ACETAMINOPHEN
     Dosage: UNK
     Route: 065
     Dates: start: 20170609, end: 20200417
  28. Miranax [Concomitant]
     Indication: Product used for unknown indication
     Dosage: UNK
     Route: 065
     Dates: start: 20161115, end: 20200417
  29. POLYETHYLENE GLYCOL 3350\POTASSIUM CHLORIDE\SODIUM BICARBONATE\SODIUM [Concomitant]
     Active Substance: POLYETHYLENE GLYCOL 3350\POTASSIUM CHLORIDE\SODIUM BICARBONATE\SODIUM CHLORIDE
     Indication: Nausea
     Dosage: UNK
     Route: 065
     Dates: start: 20200228, end: 20200228
  30. POLYETHYLENE GLYCOL 3350\POTASSIUM CHLORIDE\SODIUM BICARBONATE\SODIUM [Concomitant]
     Active Substance: POLYETHYLENE GLYCOL 3350\POTASSIUM CHLORIDE\SODIUM BICARBONATE\SODIUM CHLORIDE
     Indication: Vomiting
     Dosage: UNK
     Route: 065
     Dates: start: 20200306, end: 20200311
  31. MORPHINE [Concomitant]
     Active Substance: MORPHINE
     Dosage: 10.000MG QD
     Route: 065
     Dates: start: 20170530, end: 20200417
  32. MORPHINE [Concomitant]
     Active Substance: MORPHINE
     Indication: General physical health deterioration
     Dosage: ONGOING = NOT CHECKED
     Route: 065
     Dates: start: 20200225, end: 20200417
  33. DICLOFENAC SODIUM\ORPHENADRINE CITRATE [Concomitant]
     Active Substance: DICLOFENAC SODIUM\ORPHENADRINE CITRATE
     Indication: Product used for unknown indication
     Dosage: 250.000DF QD
     Route: 065
     Dates: start: 20181115, end: 20181116
  34. DICLOFENAC SODIUM\ORPHENADRINE CITRATE [Concomitant]
     Active Substance: DICLOFENAC SODIUM\ORPHENADRINE CITRATE
     Dosage: 250.000DF QD
     Route: 065
     Dates: start: 20181112, end: 20181113
  35. Novalgin [Concomitant]
     Indication: Product used for unknown indication
     Dosage: UNK
     Route: 065
     Dates: start: 20170609, end: 20200417
  36. Novalgin [Concomitant]
     Dosage: UNK
     Route: 065
     Dates: start: 20181117, end: 20200417
  37. ACETAMINOPHEN [Concomitant]
     Active Substance: ACETAMINOPHEN
     Indication: Nausea
     Dosage: UNK
     Route: 065
     Dates: start: 20200306, end: 20200311
  38. ACETAMINOPHEN [Concomitant]
     Active Substance: ACETAMINOPHEN
     Indication: Vomiting
     Dosage: UNK
     Route: 065
     Dates: start: 20200228, end: 20200228
  39. MEFENAMIC ACID [Concomitant]
     Active Substance: MEFENAMIC ACID
     Indication: Product used for unknown indication
     Dosage: UNK
     Route: 065
     Dates: start: 20170315, end: 20200417
  40. MORPHINE [Concomitant]
     Active Substance: MORPHINE
     Indication: General physical health deterioration
     Dosage: UNK
     Route: 065
     Dates: start: 20200225, end: 20200417
  41. VENLAFAXINE HYDROCHLORIDE [Concomitant]
     Active Substance: VENLAFAXINE HYDROCHLORIDE
     Indication: Product used for unknown indication
     Dosage: 75.000MG QD
     Route: 065
     Dates: start: 20190228
  42. XGEVA [Concomitant]
     Active Substance: DENOSUMAB
     Indication: Product used for unknown indication
     Dosage: UNK
     Route: 065
  43. Xiclav [Concomitant]
     Indication: Product used for unknown indication
     Dosage: 1.000G
     Route: 065
     Dates: start: 20181113, end: 20181120
  44. Zodorm [Concomitant]
     Indication: Vomiting
     Dosage: ONGOING = NOT CHECKED
     Route: 065
     Dates: start: 20200228, end: 20200417
  45. Zodorm [Concomitant]
     Indication: Nausea
  46. ZOFRAN [Concomitant]
     Active Substance: ONDANSETRON HYDROCHLORIDE
     Indication: Vomiting
     Dosage: UNK
     Route: 065
     Dates: start: 20200228, end: 20200228
  47. ZOFRAN [Concomitant]
     Active Substance: ONDANSETRON HYDROCHLORIDE
     Indication: Product used for unknown indication
     Dosage: UNK
     Route: 065
     Dates: start: 20161115, end: 20200417
  48. ZOLPIDEM [Concomitant]
     Active Substance: ZOLPIDEM TARTRATE
     Indication: Vomiting
     Dosage: UNK
     Route: 065
     Dates: start: 20200228, end: 20200228
  49. ZOLPIDEM [Concomitant]
     Active Substance: ZOLPIDEM TARTRATE
     Indication: Nausea
     Dosage: UNK
     Route: 065
     Dates: start: 20200228, end: 20200417

REACTIONS (2)
  - Post herpetic neuralgia [Not Recovered/Not Resolved]
  - Pain in extremity [Not Recovered/Not Resolved]

NARRATIVE: CASE EVENT DATE: 20200225
